FAERS Safety Report 7439806-3 (Version None)
Quarter: 2011Q2

REPORT INFORMATION
  Report Type: 
  Country: None (occurrence: None)
  Receive Date: 20110427
  Receipt Date: 20110418
  Transmission Date: 20111010
  Serious: Yes (Other)
  Sender: FDA-Public Use
  Company Number: US-ASTRAZENECA-2011SE22145

PATIENT
  Age: 48 Year
  Sex: Female

DRUGS (4)
  1. SEROQUEL [Suspect]
     Route: 048
  2. SEROQUEL [Suspect]
     Indication: PSYCHOTIC DISORDER
     Route: 048
  3. RISPERIDONE [Suspect]
  4. XANAX [Suspect]
     Indication: PANIC ATTACK

REACTIONS (14)
  - DYSKINESIA [None]
  - LOGORRHOEA [None]
  - HEAD TITUBATION [None]
  - ANGER [None]
  - MENTAL IMPAIRMENT [None]
  - AGGRESSION [None]
  - DRUG WITHDRAWAL SYNDROME [None]
  - CONVULSION [None]
  - DRUG INTOLERANCE [None]
  - ANXIETY [None]
  - IMPAIRED WORK ABILITY [None]
  - HYPERSOMNIA [None]
  - PANIC ATTACK [None]
  - MEMORY IMPAIRMENT [None]
